FAERS Safety Report 6656765-1 (Version None)
Quarter: 2010Q1

REPORT INFORMATION
  Report Type: 
  Country: None (occurrence: None)
  Receive Date: 20100319
  Receipt Date: 20100309
  Transmission Date: 20100710
  Serious: Yes (Other)
  Sender: FDA-Public Use
  Company Number: AEUSA200900279

PATIENT
  Age: 44 Year
  Sex: Female
  Weight: 112.4921 kg

DRUGS (1)
  1. GAMUNEX [Suspect]
     Indication: IMMUNODEFICIENCY COMMON VARIABLE
     Dosage: 40 GM; EVERY 28 DAYS; IV
     Route: 042
     Dates: end: 20090901

REACTIONS (6)
  - DIABETES MELLITUS [None]
  - HEPATIC STEATOSIS [None]
  - HEPATITIS B ANTIBODY [None]
  - LIVER FUNCTION TEST ABNORMAL [None]
  - METABOLIC SYNDROME [None]
  - TRANSMISSION OF AN INFECTIOUS AGENT VIA A MEDICINAL PRODUCT [None]
